FAERS Safety Report 20213806 (Version 1)
Quarter: 2021Q4

REPORT INFORMATION
  Report Type: Spontaneous
  Country: AU (occurrence: AU)
  Receive Date: 20211221
  Receipt Date: 20211221
  Transmission Date: 20220303
  Serious: Yes (Hospitalization, Other)
  Sender: FDA-Public Use
  Company Number: AU-MLMSERVICE-20210908-3095834-1

PATIENT
  Age: 55 Year
  Sex: Female

DRUGS (10)
  1. CYCLOSPORINE [Suspect]
     Active Substance: CYCLOSPORINE
     Indication: Immunosuppression
     Dosage: 275 MG
  2. MYCOPHENOLIC ACID [Suspect]
     Active Substance: MYCOPHENOLIC ACID
     Indication: Immunosuppressant drug therapy
     Dosage: 1000 MG
  3. VALGANCICLOVIR [Concomitant]
     Active Substance: VALGANCICLOVIR
  4. ENTECAVIR [Concomitant]
     Active Substance: ENTECAVIR
  5. ASPIRIN [Concomitant]
     Active Substance: ASPIRIN
  6. SULFAMETHOXAZOLE AND TRIMETHOPRIM [Concomitant]
     Active Substance: SULFAMETHOXAZOLE\TRIMETHOPRIM
  7. INSULIN NOS [Concomitant]
     Active Substance: INSULIN NOS
     Dosage: 40 UNITS OF BASAL-BOLUS INSULIN DAILY
  8. PREGABALIN [Concomitant]
     Active Substance: PREGABALIN
  9. CHOLECALCIFEROL [Concomitant]
     Active Substance: CHOLECALCIFEROL
  10. ENOXAPARIN [Concomitant]
     Active Substance: ENOXAPARIN

REACTIONS (3)
  - Cryptococcosis [Not Recovered/Not Resolved]
  - Disseminated cryptococcosis [Not Recovered/Not Resolved]
  - Hypercalcaemia [Recovered/Resolved]

NARRATIVE: CASE EVENT DATE: 20200101
